FAERS Safety Report 5249241-4 (Version None)
Quarter: 2007Q1

REPORT INFORMATION
  Report Type: 
  Country: None (occurrence: None)
  Receive Date: 20070228
  Receipt Date: 20070222
  Transmission Date: 20070707
  Serious: Yes (Other)
  Sender: FDA-Public Use
  Company Number: AU-ROCHE-479167

PATIENT
  Age: 51 Year
  Sex: Female
  Weight: 60 kg

DRUGS (2)
  1. PEGASYS [Suspect]
     Indication: DRUG USE FOR UNKNOWN INDICATION
     Route: 065
     Dates: start: 20061211
  2. RIBAVIRIN [Suspect]
     Indication: DRUG USE FOR UNKNOWN INDICATION
     Dosage: DOSE: 400MG EVERY MORNING, 600MG EVERY NIGHT.
     Route: 065
     Dates: start: 20061211

REACTIONS (5)
  - HYPOACUSIS [None]
  - LIP ULCERATION [None]
  - NAUSEA [None]
  - SINUSITIS [None]
  - VOMITING [None]
